FAERS Safety Report 18087643 (Version 1)
Quarter: 2020Q3

REPORT INFORMATION
  Report Type: Spontaneous
  Country: JP (occurrence: JP)
  Receive Date: 20200729
  Receipt Date: 20200729
  Transmission Date: 20201103
  Serious: Yes (Death)
  Sender: FDA-Public Use
  Company Number: JP-ABBVIE-20K-087-3499122-00

PATIENT
  Age: 82 Year
  Sex: Female

DRUGS (1)
  1. SEVOFLURANE. [Suspect]
     Active Substance: SEVOFLURANE
     Indication: PRODUCT USED FOR UNKNOWN INDICATION
     Route: 055

REACTIONS (4)
  - Hypoxic-ischaemic encephalopathy [Fatal]
  - Respiratory failure [Fatal]
  - Cardiac failure [Fatal]
  - Anaphylactic shock [Fatal]
